FAERS Safety Report 18112692 (Version 8)
Quarter: 2020Q3

REPORT INFORMATION
  Report Type: Report from Study
  Country: CN (occurrence: CN)
  Receive Date: 20200805
  Receipt Date: 20200927
  Transmission Date: 20201103
  Serious: Yes (Hospitalization)
  Sender: FDA-Public Use
  Company Number: CN-ROCHE-2651162

PATIENT
  Age: 34 Year
  Sex: Male
  Weight: 85 kg

DRUGS (21)
  1. PALONOSETRON HYDROCHLORIDE. [Concomitant]
     Active Substance: PALONOSETRON HYDROCHLORIDE
     Dates: start: 20200819, end: 20200820
  2. SANGUISORBA [Concomitant]
     Indication: COUGH
     Dates: start: 20200721, end: 20200722
  3. CARBOPLATIN. [Suspect]
     Active Substance: CARBOPLATIN
     Indication: NON-SMALL CELL LUNG CANCER STAGE IV
     Dosage: DOSE OF STUDY DRUG FIRST ADMINISTERED: 900 MG DOSE: 6 MG/ML/MIN (AS PER PROTOCOL)?DOSE OF MOST RECEN
     Route: 042
     Dates: start: 20200708
  4. OMEPRAZOLE SODIUM [Concomitant]
     Active Substance: OMEPRAZOLE SODIUM
     Dates: start: 20200708, end: 20200709
  5. OMEPRAZOLE SODIUM [Concomitant]
     Active Substance: OMEPRAZOLE SODIUM
     Dates: start: 20200818, end: 20200821
  6. SANGUISORBA [Concomitant]
     Dates: start: 20200727, end: 20200906
  7. TIOPRONIN [Concomitant]
     Active Substance: TIOPRONIN
     Dates: start: 20200907, end: 20200916
  8. TIOPRONIN [Concomitant]
     Active Substance: TIOPRONIN
     Dates: start: 20200708, end: 20200709
  9. DEXAMETHASONE ACETATE [Concomitant]
     Active Substance: DEXAMETHASONE ACETATE
     Route: 048
     Dates: start: 20200818, end: 20200820
  10. TIOPRONIN [Concomitant]
     Active Substance: TIOPRONIN
     Dates: start: 20200819, end: 20200819
  11. PALONOSETRON HYDROCHLORIDE. [Concomitant]
     Active Substance: PALONOSETRON HYDROCHLORIDE
     Dates: start: 20200708, end: 20200708
  12. REDUCED GLUTATHIONE SODIUM [Concomitant]
     Active Substance: GLUTATHIONE
     Dates: start: 20200907, end: 20200910
  13. APREPITANT. [Concomitant]
     Active Substance: APREPITANT
     Route: 048
     Dates: start: 20200708, end: 20200709
  14. INOSINE [Concomitant]
     Active Substance: INOSINE
     Dates: start: 20200819, end: 20200820
  15. BEVACIZUMAB. [Suspect]
     Active Substance: BEVACIZUMAB
     Indication: NON-SMALL CELL LUNG CANCER STAGE IV
     Dosage: DOSE OF STUDY DRUG FIRST ADMINISTERED: 1275 MG (15 MG/KG AS PER PROTOCOL)?DATE OF MOST RECENT DOSE O
     Route: 042
     Dates: start: 20200707
  16. PEMETREXED. [Suspect]
     Active Substance: PEMETREXED
     Indication: NON-SMALL CELL LUNG CANCER STAGE IV
     Dosage: DOSE OF STUDY DRUG FIRST ADMINISTERED: 975 MG (500 MG/M2 AS PER PROTOCOL)?DATE OF MOST RECENT DOSE O
     Route: 042
     Dates: start: 20200708
  17. APREPITANT. [Concomitant]
     Active Substance: APREPITANT
     Dosage: 1 CAPSULE
     Route: 048
     Dates: start: 20200819, end: 20200820
  18. PLACEBO [Suspect]
     Active Substance: UNSPECIFIED INGREDIENT
     Indication: NON-SMALL CELL LUNG CANCER STAGE IV
     Dosage: DATE OF MOST RECENT PLACEBO PRIOR TO ADVERSE EVENT ONSET: 07/JUL/2020
     Route: 042
     Dates: start: 20200707
  19. BICYCLOL [Concomitant]
     Active Substance: BICYCLOL
     Dates: start: 20200907, end: 20200916
  20. TIOPRONIN [Concomitant]
     Active Substance: TIOPRONIN
     Dates: start: 20200729, end: 20200804
  21. DEXAMETHASONE ACETATE [Concomitant]
     Active Substance: DEXAMETHASONE ACETATE
     Route: 048
     Dates: start: 20200707, end: 20200709

REACTIONS (1)
  - Abscess [Recovered/Resolved with Sequelae]

NARRATIVE: CASE EVENT DATE: 20200723
